FAERS Safety Report 9170641 (Version 1)
Quarter: 2013Q1

REPORT INFORMATION
  Report Type: Spontaneous
  Country: FR (occurrence: FR)
  Receive Date: 20130319
  Receipt Date: 20130319
  Transmission Date: 20140127
  Serious: Yes (Other)
  Sender: FDA-Public Use
  Company Number: FR-BAUSCH-BL-2013-001621

PATIENT
  Sex: Female

DRUGS (4)
  1. YELLOX [Suspect]
     Indication: POSTOPERATIVE CARE
     Route: 047
  2. YELLOX [Suspect]
     Indication: CATARACT OPERATION
  3. CHIBRO CADRON [Suspect]
     Indication: POSTOPERATIVE CARE
     Route: 047
  4. CHIBRO CADRON [Suspect]
     Indication: CATARACT OPERATION

REACTIONS (1)
  - Cystoid macular oedema [Recovered/Resolved]
